FAERS Safety Report 4477219-7 (Version None)
Quarter: 2004Q4

REPORT INFORMATION
  Report Type: 
  Country: None (occurrence: None)
  Receive Date: 20041018
  Receipt Date: 20041011
  Transmission Date: 20050328
  Serious: Yes (Life-Threatening, Hospitalization, Disabling)
  Sender: FDA-Public Use
  Company Number: US-MERCK-0410USA01650

PATIENT
  Age: 54 Year
  Sex: Male

DRUGS (12)
  1. [THERAPY UNSPECIFIED] [Concomitant]
     Route: 048
  2. ULTRACET [Concomitant]
     Route: 065
  3. XANAX [Concomitant]
     Route: 065
  4. ASPIRIN [Concomitant]
     Route: 065
  5. ATENOLOL [Concomitant]
     Route: 065
  6. TAVIST [Concomitant]
     Route: 048
  7. LASIX [Concomitant]
     Route: 065
  8. PREVACID [Concomitant]
     Route: 065
  9. SYNTHROID [Concomitant]
     Route: 065
  10. VIOXX [Suspect]
     Indication: ARTHRITIS
     Route: 048
     Dates: start: 19960101, end: 20000501
  11. VIOXX [Suspect]
     Route: 048
     Dates: start: 20030101, end: 20040301
  12. ZOCOR [Concomitant]
     Route: 048

REACTIONS (2)
  - CEREBROVASCULAR ACCIDENT [None]
  - MYOCARDIAL INFARCTION [None]
